FAERS Safety Report 18665968 (Version 1)
Quarter: 2020Q4

REPORT INFORMATION
  Report Type: Spontaneous
  Country: SE (occurrence: SE)
  Receive Date: 20201226
  Receipt Date: 20201226
  Transmission Date: 20210114
  Serious: Yes (Death)
  Sender: FDA-Public Use
  Company Number: SE-TEVA-2020-SE-1860782

PATIENT
  Age: 21 Year
  Sex: Male

DRUGS (5)
  1. LERGIGAN FORTE [Concomitant]
     Dosage: IF NECESSARY
     Dates: start: 20200319, end: 202006
  2. MIRTAZAPINE. [Suspect]
     Active Substance: MIRTAZAPINE
     Indication: SLEEP DISORDER
  3. ZOPICLONE [Concomitant]
     Active Substance: ZOPICLONE
     Dates: start: 201912, end: 202005
  4. MIRTAZAPINE. [Suspect]
     Active Substance: MIRTAZAPINE
     Indication: ANXIETY
     Dosage: UNIT DOSE : 15 MG
     Route: 048
     Dates: start: 202005, end: 202006
  5. MELATONIN [Concomitant]
     Active Substance: MELATONIN
     Dates: start: 20200124, end: 202006

REACTIONS (2)
  - Agitation [Fatal]
  - Completed suicide [Fatal]

NARRATIVE: CASE EVENT DATE: 202006
